FAERS Safety Report 7864683-6 (Version None)
Quarter: 2011Q4

REPORT INFORMATION
  Report Type: 
  Country: None (occurrence: None)
  Receive Date: 20111028
  Receipt Date: 20111026
  Transmission Date: 20120403
  Serious: Yes (Other)
  Sender: FDA-Public Use
  Company Number: JP-PFIZER INC-2011247154

PATIENT
  Age: 75 Year
  Sex: Female

DRUGS (6)
  1. FLUCONAZOLE [Concomitant]
     Indication: CRYPTOCOCCOSIS
     Dosage: 200 MG/DAY
     Dates: start: 20110804, end: 20110809
  2. ANCOTIL [Concomitant]
     Indication: MENINGITIS
     Dosage: 4000 MG/DAY
     Route: 048
     Dates: start: 20110811, end: 20110819
  3. ANCOTIL [Concomitant]
     Dosage: 4000 MG/DAY
     Route: 048
     Dates: start: 20110901, end: 20110930
  4. DIFLUCAN [Suspect]
     Indication: MENINGITIS CRYPTOCOCCAL
     Dosage: 800 MG DAILY
     Route: 048
     Dates: start: 20110823
  5. FUNGIZONE [Concomitant]
     Indication: MENINGITIS
     Dosage: 10 MG/DAY
     Dates: start: 20110808
  6. FUNGIZONE [Concomitant]
     Dosage: 30 MG/DAY
     Dates: end: 20110819

REACTIONS (1)
  - DISTURBANCE IN ATTENTION [None]
